FAERS Safety Report 4679013-0 (Version None)
Quarter: 2005Q2

REPORT INFORMATION
  Report Type: 
  Country: None (occurrence: None)
  Receive Date: 20050531
  Receipt Date: 20050517
  Transmission Date: 20051028
  Serious: Yes (Hospitalization)
  Sender: FDA-Public Use
  Company Number: HQWYE785419MAY05

PATIENT
  Age: 38 Year
  Sex: Female

DRUGS (11)
  1. EFFEXOR [Suspect]
     Dosage: SEE IMAGE
     Route: 048
  2. ALBUEROL (SALBUTAMOL, ) [Suspect]
     Dosage: 2.5 MG 2X PER 1 DAY
  3. ZYVOX [Suspect]
     Indication: STAPHYLOCOCCAL INFECTION
     Dosage: 600 MG 1X PER 12 HR
     Route: 042
  4. HYDROMORPHONE HCL [Concomitant]
  5. GABAPENTIN [Concomitant]
  6. ENZYMES (ENZYMES) [Concomitant]
  7. MONTELUKAST (MONTELUKAST) [Concomitant]
  8. COLISTIN (COLISTIN) [Concomitant]
  9. DORNASE ALFA (DORNASE ALFA) [Concomitant]
  10. BUDESONIDE [Concomitant]
  11. MULTIVITAMINS, PLAIN (MULTIVITAMINS, PLAIN) [Concomitant]

REACTIONS (10)
  - BLOOD PRESSURE INCREASED [None]
  - DYSKINESIA [None]
  - DYSPNOEA [None]
  - FATIGUE [None]
  - HEADACHE [None]
  - HOT FLUSH [None]
  - MUSCLE RIGIDITY [None]
  - NERVOUSNESS [None]
  - SEROTONIN SYNDROME [None]
  - TREMOR [None]
